FAERS Safety Report 7792708-5 (Version None)
Quarter: 2011Q4

REPORT INFORMATION
  Report Type: 
  Country: None (occurrence: None)
  Receive Date: 20111003
  Receipt Date: 20110928
  Transmission Date: 20120403
  Serious: Yes (Other)
  Sender: FDA-Public Use
  Company Number: GB-MERCK-1109GBR00050

PATIENT
  Age: 76 Year
  Sex: Female
  Weight: 67 kg

DRUGS (11)
  1. BECLOMETHASONE DIPROPIONATE [Concomitant]
     Route: 065
     Dates: start: 20110614
  2. GABAPENTIN [Concomitant]
     Route: 065
     Dates: start: 20110519
  3. RAMIPRIL [Concomitant]
     Route: 065
     Dates: start: 20110519
  4. DILTIAZEM HYDROCHLORIDE [Concomitant]
     Route: 065
     Dates: start: 20110519
  5. ZOCOR [Suspect]
     Route: 048
     Dates: start: 20110901
  6. OMEPRAZOLE [Concomitant]
     Route: 065
     Dates: start: 20110519
  7. ZOPICLONE [Concomitant]
     Route: 065
     Dates: start: 20110519
  8. CALCIUM CARBONATE AND CHOLECALCIFEROL [Concomitant]
     Route: 065
     Dates: start: 20110519
  9. HYPROMELLOSE [Concomitant]
     Route: 065
     Dates: start: 20110519
  10. DOCUSATE SODIUM [Concomitant]
     Route: 065
     Dates: start: 20110519
  11. MEPTAZINOL [Concomitant]
     Route: 065
     Dates: start: 20110815

REACTIONS (1)
  - CONTUSION [None]
